FAERS Safety Report 17720796 (Version 2)
Quarter: 2020Q2

REPORT INFORMATION
  Report Type: Spontaneous
  Country: US (occurrence: US)
  Receive Date: 20200428
  Receipt Date: 20200622
  Transmission Date: 20200714
  Serious: Yes (Other)
  Sender: FDA-Public Use
  Company Number: US-NOVOPROD-724831

PATIENT
  Age: 76 Year
  Sex: Male
  Weight: 97.52 kg

DRUGS (2)
  1. NOVOLIN R [Suspect]
     Active Substance: INSULIN HUMAN
     Indication: TYPE 2 DIABETES MELLITUS
     Dosage: 20 IU, BID
     Route: 058
     Dates: start: 2010
  2. NOVOLIN N [Suspect]
     Active Substance: INSULIN HUMAN
     Indication: TYPE 2 DIABETES MELLITUS
     Dosage: 30 IU, BID
     Route: 058
     Dates: start: 2010

REACTIONS (5)
  - Blood glucose decreased [Recovered/Resolved]
  - Weight increased [Not Recovered/Not Resolved]
  - Glycosylated haemoglobin increased [Recovering/Resolving]
  - Influenza [Recovering/Resolving]
  - Blood glucose increased [Recovering/Resolving]

NARRATIVE: CASE EVENT DATE: 201911
